FAERS Safety Report 8367224-2 (Version None)
Quarter: 2012Q2

REPORT INFORMATION
  Report Type: 
  Country: None (occurrence: None)
  Receive Date: 20120517
  Receipt Date: 20120509
  Transmission Date: 20120825
  Serious: Yes (Other)
  Sender: FDA-Public Use
  Company Number: PHHY2012US040365

PATIENT
  Age: 32 Year
  Sex: Female

DRUGS (2)
  1. PREDNISOLONE [Suspect]
  2. OFLOXACIN [Concomitant]

REACTIONS (11)
  - ENDOPHTHALMITIS [None]
  - OCULAR HYPERAEMIA [None]
  - HYPOPYON [None]
  - FUSARIUM INFECTION [None]
  - CORNEAL INFILTRATES [None]
  - VISION BLURRED [None]
  - ULCERATIVE KERATITIS [None]
  - CORNEAL PERFORATION [None]
  - EYE PAIN [None]
  - CORNEAL GRAFT REJECTION [None]
  - ANTERIOR CHAMBER INFLAMMATION [None]
